FAERS Safety Report 16162869 (Version 3)
Quarter: 2019Q2

REPORT INFORMATION
  Report Type: Report from Study
  Country: US (occurrence: US)
  Receive Date: 20190405
  Receipt Date: 20190522
  Transmission Date: 20190711
  Serious: Yes (Hospitalization)
  Sender: FDA-Public Use
  Company Number: US-EISAI MEDICAL RESEARCH-EC-2019-053149

PATIENT
  Age: 67 Year
  Sex: Male
  Weight: 145 kg

DRUGS (20)
  1. LENVIMA [Suspect]
     Active Substance: LENVATINIB
     Indication: HEPATOCELLULAR CARCINOMA
     Route: 048
     Dates: start: 20190227, end: 2019
  2. ZOLPIDEM [Concomitant]
     Active Substance: ZOLPIDEM\ZOLPIDEM TARTRATE
  3. CEPHALEXIN. [Concomitant]
     Active Substance: CEPHALEXIN
  4. OXYCODONE HYDROCHLORIDE. [Concomitant]
     Active Substance: OXYCODONE HYDROCHLORIDE
  5. NORCO [Concomitant]
     Active Substance: ACETAMINOPHEN\HYDROCODONE BITARTRATE
  6. PANTOPRAZOLE [Concomitant]
     Active Substance: PANTOPRAZOLE
  7. OPDIVO [Concomitant]
     Active Substance: NIVOLUMAB
  8. LACTULOSE. [Concomitant]
     Active Substance: LACTULOSE
  9. XIFAXAN [Concomitant]
     Active Substance: RIFAXIMIN
  10. LENVIMA [Suspect]
     Active Substance: LENVATINIB
     Route: 048
     Dates: start: 20190513
  11. LEVOTHYROXINE. [Concomitant]
     Active Substance: LEVOTHYROXINE
  12. PROCHLORPERAZINE. [Concomitant]
     Active Substance: PROCHLORPERAZINE
  13. AUGMENTIN [Concomitant]
     Active Substance: AMOXICILLIN\CLAVULANATE POTASSIUM
  14. AQUAPHOR [Concomitant]
     Active Substance: PETROLATUM
  15. MUPIROCIN. [Concomitant]
     Active Substance: MUPIROCIN
  16. FUROSEMIDE. [Concomitant]
     Active Substance: FUROSEMIDE
  17. FLUTICASONE. [Concomitant]
     Active Substance: FLUTICASONE
  18. LISINOPRIL. [Concomitant]
     Active Substance: LISINOPRIL
  19. BACTRIM [Concomitant]
     Active Substance: SULFAMETHOXAZOLE\TRIMETHOPRIM
  20. VENTOLIN [Concomitant]
     Active Substance: ALBUTEROL SULFATE

REACTIONS (10)
  - Blister [Not Recovered/Not Resolved]
  - Peripheral swelling [Unknown]
  - Ammonia increased [Recovered/Resolved]
  - Fatigue [Not Recovered/Not Resolved]
  - Blood pressure increased [Not Recovered/Not Resolved]
  - Constipation [Unknown]
  - Contusion [Not Recovered/Not Resolved]
  - Memory impairment [Recovered/Resolved]
  - Pain in extremity [Unknown]
  - Rash [Unknown]

NARRATIVE: CASE EVENT DATE: 2019
